FAERS Safety Report 13587235 (Version 10)
Quarter: 2018Q2

REPORT INFORMATION
  Report Type: Report from Study
  Country: BR (occurrence: BR)
  Receive Date: 20170526
  Receipt Date: 20180626
  Transmission Date: 20180711
  Serious: Yes (Hospitalization, Disabling, Other)
  Sender: FDA-Public Use
  Company Number: BR-SA-2017SA062679

PATIENT
  Age: 48 Year
  Sex: Male
  Weight: 132 kg

DRUGS (4)
  1. ALEMTUZUMAB [Suspect]
     Active Substance: ALEMTUZUMAB
     Indication: MULTIPLE SCLEROSIS
     Dosage: 3 MG,QD
     Route: 041
     Dates: start: 20170404, end: 20170406
  2. ALEMTUZUMAB [Suspect]
     Active Substance: ALEMTUZUMAB
     Dosage: UNK UNK,QD
     Route: 041
     Dates: start: 20160111, end: 20160115
  3. SALINE [SODIUM CHLORIDE] [Concomitant]
     Active Substance: SODIUM CHLORIDE
     Dosage: UNK
  4. FAMPYRA [Concomitant]
     Active Substance: DALFAMPRIDINE
     Indication: GAIT DISTURBANCE
     Dosage: UNK UNK,UNK
     Route: 065
     Dates: start: 201704

REACTIONS (26)
  - Urticaria [Unknown]
  - Weight increased [Not Recovered/Not Resolved]
  - Back pain [Unknown]
  - Product use issue [Not Recovered/Not Resolved]
  - Paraesthesia [Recovered/Resolved]
  - Movement disorder [Not Recovered/Not Resolved]
  - Herpes zoster [Unknown]
  - Multiple sclerosis relapse [Recovered/Resolved]
  - Gait disturbance [Not Recovered/Not Resolved]
  - Hypersensitivity [Recovered/Resolved]
  - Dyspnoea [Unknown]
  - Pain in extremity [Unknown]
  - Loss of consciousness [Recovered/Resolved]
  - Gait inability [Not Recovered/Not Resolved]
  - Obesity [Not Recovered/Not Resolved]
  - Decreased appetite [Not Recovered/Not Resolved]
  - Pruritus [Recovering/Resolving]
  - Muscular weakness [Not Recovered/Not Resolved]
  - Drug ineffective [Unknown]
  - Ill-defined disorder [Not Recovered/Not Resolved]
  - Condition aggravated [Not Recovered/Not Resolved]
  - Blood pressure increased [Recovered/Resolved]
  - Osteoporosis [Not Recovered/Not Resolved]
  - Back pain [Not Recovered/Not Resolved]
  - Erythema [Recovering/Resolving]
  - Swelling [Unknown]

NARRATIVE: CASE EVENT DATE: 2017
